FAERS Safety Report 8367328-4 (Version None)
Quarter: 2012Q2

REPORT INFORMATION
  Report Type: 
  Country: None (occurrence: None)
  Receive Date: 20120517
  Receipt Date: 20120514
  Transmission Date: 20120825
  Serious: Yes (Other)
  Sender: FDA-Public Use
  Company Number: FR-PFIZER INC-2011074856

PATIENT
  Age: 1 Day
  Sex: Female
  Weight: 2.9 kg

DRUGS (4)
  1. LITHIUM CARBONATE [Suspect]
     Indication: BIPOLAR DISORDER
     Dosage: 400MG TABLET, 2.5 DF DAILY
     Route: 064
     Dates: start: 20100607, end: 20110222
  2. LEVOTHYROXINE SODIUM [Suspect]
     Indication: HYPOTHYROIDISM
     Dosage: 75 UG, 1X/DAY
     Route: 064
     Dates: start: 20100607, end: 20110222
  3. XANAX [Suspect]
     Indication: BIPOLAR DISORDER
     Dosage: 3 TABLETS/DAY
     Route: 064
     Dates: start: 20100607, end: 20110222
  4. CHLORPROMAZINE HCL [Suspect]
     Indication: BIPOLAR DISORDER
     Dosage: 45 DROPS DAILY
     Route: 064
     Dates: start: 20100607, end: 20110222

REACTIONS (2)
  - THYROID DISORDER [None]
  - FOETAL EXPOSURE DURING PREGNANCY [None]
